FAERS Safety Report 13181283 (Version 1)
Quarter: 2017Q1

REPORT INFORMATION
  Report Type: Spontaneous
  Country: US (occurrence: US)
  Receive Date: 20170202
  Receipt Date: 20170202
  Transmission Date: 20170428
  Serious: No
  Sender: FDA-Public Use
  Company Number: US-SMITH AND NEPHEW, INC-2016SMT01104

PATIENT
  Age: 55 Year
  Sex: Male
  Weight: 134.69 kg

DRUGS (2)
  1. REGRANEX [Suspect]
     Active Substance: BECAPLERMIN
     Indication: WOUND
     Dosage: UNK
     Route: 061
     Dates: start: 201611, end: 20161212
  2. UNSPECIFIED OTHER MEDICATIONS [Concomitant]
     Active Substance: UNSPECIFIED INGREDIENT

REACTIONS (3)
  - Pain [Not Recovered/Not Resolved]
  - Peripheral swelling [Unknown]
  - Wound [Recovering/Resolving]

NARRATIVE: CASE EVENT DATE: 2016
